FAERS Safety Report 7155999-X (Version None)
Quarter: 2010Q4

REPORT INFORMATION
  Report Type: 
  Country: None (occurrence: None)
  Receive Date: 20101214
  Receipt Date: 20101207
  Transmission Date: 20110411
  Serious: Yes (Other)
  Sender: FDA-Public Use
  Company Number: GB-B.I. PHARMACEUTICALS,INC./RIDGEFIELD-2010-DE-06800GD

PATIENT
  Age: 41 Year
  Sex: Male

DRUGS (2)
  1. NEVIRAPINE [Suspect]
     Indication: HIV INFECTION
  2. KIVEXA [Suspect]
     Indication: HIV INFECTION

REACTIONS (8)
  - ANAEMIA [None]
  - CASTLEMAN'S DISEASE [None]
  - EOSINOPHILIA [None]
  - HEPATITIS [None]
  - HEPATOSPLENOMEGALY [None]
  - IMMUNE RECONSTITUTION SYNDROME [None]
  - LYMPHADENOPATHY [None]
  - PYREXIA [None]
